FAERS Safety Report 6055891-8 (Version None)
Quarter: 2009Q1

REPORT INFORMATION
  Report Type: 
  Country: None (occurrence: None)
  Receive Date: 20090126
  Receipt Date: 20090109
  Transmission Date: 20090719
  Serious: Yes (Other)
  Sender: FDA-Public Use
  Company Number: RENA-1000178

PATIENT
  Age: 71 Year
  Sex: Female

DRUGS (10)
  1. RENAGEL [Suspect]
     Indication: HYPERPHOSPHATAEMIA
     Dosage: QD, ORAL : QD, ORAL
     Route: 048
     Dates: end: 20080210
  2. RENAGEL [Suspect]
     Indication: HYPERPHOSPHATAEMIA
     Dosage: QD, ORAL : QD, ORAL
     Route: 048
     Dates: start: 20080321, end: 20080718
  3. FOSRENOL [Suspect]
     Indication: DRUG USE FOR UNKNOWN INDICATION
     Dates: start: 20080210, end: 20080321
  4. FOSRENOL [Suspect]
     Indication: DRUG USE FOR UNKNOWN INDICATION
     Dates: start: 20080718
  5. ACETAMINOPHEN [Suspect]
     Indication: ARTHRALGIA
     Dosage: 1 G, TID, VAGINAL
     Route: 067
     Dates: start: 20070504
  6. DURAGESIC-100 [Suspect]
     Indication: PAIN
     Dosage: 25 MCG
     Dates: start: 20061220
  7. CLONAZEPAM [Suspect]
     Indication: NEUROPATHY PERIPHERAL
     Dosage: 1 MG, QD
     Dates: start: 20070514
  8. HEXAQUINE(MELAEUCA VIRDIFLORA OIL, QUININE BENZOATE, THIAMINE HYDROCHL [Suspect]
     Indication: MUSCLE SPASMS
     Dosage: 1 UNK, QD
     Dates: start: 20041119
  9. KAYEXALATE [Suspect]
     Indication: HYPERKALAEMIA
     Dosage: 2 UNK
     Dates: start: 20041117
  10. NEXIUM [Concomitant]

REACTIONS (6)
  - ABDOMINAL PAIN [None]
  - DIVERTICULUM INTESTINAL [None]
  - LIPASE INCREASED [None]
  - OVARIAN CYST [None]
  - RENAL CYST [None]
  - SCAN ABDOMEN ABNORMAL [None]
